FAERS Safety Report 9585854 (Version 1)
Quarter: 2013Q4

REPORT INFORMATION
  Report Type: Spontaneous
  Country: US (occurrence: None)
  Receive Date: 20131001
  Receipt Date: 20131001
  Transmission Date: 20140711
  Serious: Yes (Hospitalization)
  Sender: FDA-Public Use
  Company Number: IMP_06828_2013

PATIENT
  Age: 22 Year
  Sex: Female

DRUGS (3)
  1. CLONIDINE [Suspect]
     Indication: PRODUCT USED FOR UNKNOWN INDICATION
  2. GLYBURIDE [Concomitant]
  3. FLUOXETINE [Concomitant]

REACTIONS (10)
  - Blood pressure increased [None]
  - No therapeutic response [None]
  - Feeling hot [None]
  - Hyperhidrosis [None]
  - Sensory disturbance [None]
  - Ataxia [None]
  - Vertebral artery dissection [None]
  - Cerebrovascular accident [None]
  - Drug withdrawal syndrome [None]
  - Neck injury [None]
